FAERS Safety Report 6612110-9 (Version None)
Quarter: 2010Q1

REPORT INFORMATION
  Report Type: 
  Country: None (occurrence: None)
  Receive Date: 20100302
  Receipt Date: 20100302
  Transmission Date: 20100710
  Serious: Yes (Death, Hospitalization, Other)
  Sender: FDA-Public Use
  Company Number: None

PATIENT
  Age: 62 Year
  Sex: Female
  Weight: 58.9676 kg

DRUGS (9)
  1. EVISTA [Suspect]
     Indication: OSTEOPOROSIS PROPHYLAXIS
     Dates: start: 19990701, end: 20081130
  2. AMBIEN CR [Concomitant]
  3. LOTENSIN [Concomitant]
  4. HYDROCHLOROTHIAZIDE [Concomitant]
  5. CALCIUM [Concomitant]
  6. RANITIDINE [Concomitant]
  7. PREVACID [Concomitant]
  8. ACETAMINOPHEN [Concomitant]
  9. LOREZAPAM [Concomitant]

REACTIONS (5)
  - BACK PAIN [None]
  - BONE NEOPLASM MALIGNANT [None]
  - ENDOMETRIAL CANCER [None]
  - METASTASES TO BONE MARROW [None]
  - UTERINE CANCER [None]
